FAERS Safety Report 7610789-6 (Version None)
Quarter: 2011Q3

REPORT INFORMATION
  Report Type: 
  Country: None (occurrence: None)
  Receive Date: 20110715
  Receipt Date: 20110705
  Transmission Date: 20111222
  Serious: No
  Sender: FDA-Public Use
  Company Number: PHHY2011CH59996

PATIENT
  Sex: Male

DRUGS (3)
  1. CIPROFLOXACIN [Concomitant]
     Dosage: UNK
     Dates: start: 20110629, end: 20110706
  2. AMOXICILLIN [Concomitant]
     Dosage: UNK
     Dates: start: 20110629, end: 20110706
  3. TASIGNA [Suspect]
     Indication: CHRONIC MYELOID LEUKAEMIA
     Dosage: 600 MG, DAILY
     Route: 048
     Dates: start: 20110623

REACTIONS (1)
  - PYREXIA [None]
